FAERS Safety Report 8326407-8 (Version None)
Quarter: 2012Q2

REPORT INFORMATION
  Report Type: 
  Country: None (occurrence: None)
  Receive Date: 20120501
  Receipt Date: 20120424
  Transmission Date: 20120825
  Serious: Yes (Hospitalization, Other)
  Sender: FDA-Public Use
  Company Number: US-MERCK-1202USA02284

PATIENT
  Age: 68 Year
  Sex: Female
  Weight: 68 kg

DRUGS (8)
  1. FOSAMAX [Suspect]
     Indication: OSTEOPOROSIS
     Route: 048
     Dates: end: 20100601
  2. TYLENOL (CAPLET) [Concomitant]
     Indication: SPINAL OSTEOARTHRITIS
     Route: 065
  3. CALCIUM (UNSPECIFIED) AND VITAMIN D (UNSPECIFIED) [Concomitant]
     Indication: OSTEOARTHRITIS
     Route: 065
  4. FOSAMAX [Suspect]
     Route: 048
     Dates: end: 20100601
  5. CALCIUM (UNSPECIFIED) [Concomitant]
     Route: 065
  6. VITAMIN D (UNSPECIFIED) [Concomitant]
     Route: 065
  7. TYLENOL (CAPLET) [Concomitant]
     Indication: INSOMNIA
     Route: 065
  8. ALENDRONATE SODIUM [Suspect]
     Route: 065
     Dates: start: 20080312

REACTIONS (20)
  - RECTOCELE [None]
  - FOOT DEFORMITY [None]
  - VITAMIN D DEFICIENCY [None]
  - STRESS URINARY INCONTINENCE [None]
  - NEPHROLITHIASIS [None]
  - CATARACT [None]
  - MEDICAL DEVICE PAIN [None]
  - FALL [None]
  - PELVIC PROLAPSE [None]
  - ELECTROCARDIOGRAM PR PROLONGATION [None]
  - ARTHROPATHY [None]
  - BLOOD THYROID STIMULATING HORMONE INCREASED [None]
  - CYSTOCELE [None]
  - INCREASED TENDENCY TO BRUISE [None]
  - HERNIA [None]
  - FEMUR FRACTURE [None]
  - ADVERSE EVENT [None]
  - OSTEOARTHRITIS [None]
  - INSOMNIA [None]
  - FIBULA FRACTURE [None]
